FAERS Safety Report 5403892-2 (Version None)
Quarter: 2007Q3

REPORT INFORMATION
  Report Type: 
  Country: None (occurrence: None)
  Receive Date: 20070731
  Receipt Date: 20070731
  Transmission Date: 20080115
  Serious: Yes (Other)
  Sender: FDA-Public Use
  Company Number: None

PATIENT
  Sex: Female

DRUGS (1)
  1. ENBREL [Suspect]
     Dosage: 50MG ONCE A WEEK SQ
     Route: 058
     Dates: start: 20070507, end: 20070716

REACTIONS (1)
  - LUPUS-LIKE SYNDROME [None]
